FAERS Safety Report 21592786 (Version 2)
Quarter: 2022Q4

REPORT INFORMATION
  Report Type: Spontaneous
  Country: ZA (occurrence: ZA)
  Receive Date: 20221114
  Receipt Date: 20221129
  Transmission Date: 20230112
  Serious: Yes (Hospitalization, Other)
  Sender: FDA-Public Use
  Company Number: ZA-TEVA-2022-ZA-2826324

PATIENT
  Age: 58 Year
  Sex: Female

DRUGS (20)
  1. DOXORUBICIN [Suspect]
     Active Substance: DOXORUBICIN
     Indication: Plasma cell myeloma
     Dosage: 5TH LINE PAD THERAPY
     Route: 065
     Dates: start: 201904
  2. ETOPOSIDE [Suspect]
     Active Substance: ETOPOSIDE
     Indication: Plasma cell myeloma
     Dosage: 6TH LINE DCEP
     Route: 065
     Dates: start: 201906
  3. CYCLOPHOSPHAMIDE [Suspect]
     Active Substance: CYCLOPHOSPHAMIDE
     Indication: Plasma cell myeloma
     Dosage: 2ND LINE CTD THERAPY
     Route: 065
     Dates: start: 201404
  4. CYCLOPHOSPHAMIDE [Suspect]
     Active Substance: CYCLOPHOSPHAMIDE
     Dosage: 3RD LINE ICD
     Route: 065
     Dates: start: 201705
  5. CYCLOPHOSPHAMIDE [Suspect]
     Active Substance: CYCLOPHOSPHAMIDE
     Dosage: 6TH LINE DCEP THERAPY
     Route: 065
     Dates: start: 201906
  6. THALIDOMIDE [Suspect]
     Active Substance: THALIDOMIDE
     Indication: Plasma cell myeloma
     Route: 065
     Dates: start: 201404
  7. DEXAMETHASONE [Suspect]
     Active Substance: DEXAMETHASONE
     Indication: Plasma cell myeloma
     Dosage: 2ND LINE CTD THERAPY
     Route: 065
     Dates: start: 201404
  8. DEXAMETHASONE [Suspect]
     Active Substance: DEXAMETHASONE
     Dosage: 4TH LINE IRD THERAPY
     Route: 065
     Dates: start: 201808
  9. DEXAMETHASONE [Suspect]
     Active Substance: DEXAMETHASONE
     Dosage: 5TH LINE PAD THERAPY
     Route: 065
     Dates: start: 201904
  10. DEXAMETHASONE [Suspect]
     Active Substance: DEXAMETHASONE
     Dosage: 6TH LINE DCEP THERAPY
     Route: 065
     Dates: start: 201906
  11. DEXAMETHASONE [Suspect]
     Active Substance: DEXAMETHASONE
     Dosage: 8TH LINE POM/DEX THERAPY
     Route: 065
     Dates: start: 201912
  12. IXAZOMIB [Suspect]
     Active Substance: IXAZOMIB
     Indication: Plasma cell myeloma
     Dosage: AS A PART OF ICD REGIMEN
     Route: 065
     Dates: start: 201705
  13. IXAZOMIB [Suspect]
     Active Substance: IXAZOMIB
     Dosage: 4TH LINE IRD THERAPY
     Route: 065
     Dates: start: 201808
  14. PREDNISONE [Suspect]
     Active Substance: PREDNISONE
     Indication: Plasma cell myeloma
     Dosage: 3RD LINE ICD THERAPY
     Route: 065
     Dates: start: 201705
  15. LENALIDOMIDE [Suspect]
     Active Substance: LENALIDOMIDE
     Indication: Plasma cell myeloma
     Dosage: 4TH LINE IRD THERAPY
     Route: 065
     Dates: start: 201808
  16. BORTEZOMIB [Suspect]
     Active Substance: BORTEZOMIB
     Indication: Plasma cell myeloma
     Dosage: 5TH LINE PAD THERAPY
     Route: 065
     Dates: start: 201904
  17. CISPLATIN [Suspect]
     Active Substance: CISPLATIN
     Indication: Plasma cell myeloma
     Dosage: 6TH LINE DCEP THERAPY
     Route: 065
     Dates: start: 201906
  18. BENDAMUSTINE [Suspect]
     Active Substance: BENDAMUSTINE
     Indication: Plasma cell myeloma
     Dosage: 7TH LINE MONTHERAPY
     Route: 065
     Dates: start: 201910
  19. POMALIDOMIDE [Suspect]
     Active Substance: POMALIDOMIDE
     Indication: Plasma cell myeloma
     Dosage: 8TH LINE POM/DEX THERAPY
     Route: 065
     Dates: start: 201912
  20. MELPHALAN [Concomitant]
     Active Substance: MELPHALAN
     Indication: Bone marrow conditioning regimen
     Route: 065

REACTIONS (6)
  - Bone marrow failure [Recovering/Resolving]
  - Leukopenia [Recovering/Resolving]
  - Neutropenia [Recovering/Resolving]
  - Anaemia [Recovering/Resolving]
  - Thrombocytopenia [Recovering/Resolving]
  - Drug ineffective [Unknown]
